FAERS Safety Report 6688151-2 (Version None)
Quarter: 2010Q2

REPORT INFORMATION
  Report Type: 
  Country: None (occurrence: None)
  Receive Date: 20100420
  Receipt Date: 20100409
  Transmission Date: 20101027
  Serious: Yes (Other)
  Sender: FDA-Public Use
  Company Number: US-PFIZER INC-2005171407

PATIENT
  Sex: Female
  Weight: 72.562 kg

DRUGS (2)
  1. VIBRAMYCIN [Suspect]
     Indication: INFECTION
     Route: 048
     Dates: start: 20051001, end: 20051207
  2. VIBRAMYCIN [Suspect]
     Dosage: UNK
     Route: 048
     Dates: start: 20050101, end: 20100408

REACTIONS (9)
  - ARRHYTHMIA [None]
  - ARTHRITIS [None]
  - ARTHROPOD BITE [None]
  - BLOOD GLUCOSE INCREASED [None]
  - DRUG DISPENSING ERROR [None]
  - HEADACHE [None]
  - INFECTION [None]
  - MUSCLE SPASMS [None]
  - PALPITATIONS [None]
